FAERS Safety Report 15946946 (Version 1)
Quarter: 2019Q1

REPORT INFORMATION
  Report Type: Spontaneous
  Country: US (occurrence: US)
  Receive Date: 20190211
  Receipt Date: 20190211
  Transmission Date: 20190417
  Serious: No
  Sender: FDA-Public Use
  Company Number: US-PFIZER INC-2019050825

PATIENT
  Age: 60 Year
  Sex: Female
  Weight: 97.7 kg

DRUGS (3)
  1. METHADONE [Suspect]
     Active Substance: METHADONE HYDROCHLORIDE
     Indication: PAIN
     Dosage: 5 MG, THREE TIMES A DAY (EVERY 8 HOURS)
     Route: 048
  2. IBRANCE [Suspect]
     Active Substance: PALBOCICLIB
     Indication: BREAST CANCER STAGE IV
     Dosage: 75 MG, ONCE A DAY
     Route: 048
     Dates: start: 201810
  3. ZONISAMIDE. [Suspect]
     Active Substance: ZONISAMIDE
     Indication: FIBROMYALGIA
     Dosage: 200 MG, TWICE A DAY
     Route: 048
     Dates: start: 2005

REACTIONS (1)
  - Memory impairment [Not Recovered/Not Resolved]
